FAERS Safety Report 23105190 (Version 1)
Quarter: 2023Q4

REPORT INFORMATION
  Report Type: Spontaneous
  Country: TR (occurrence: TR)
  Receive Date: 20231025
  Receipt Date: 20231025
  Transmission Date: 20240109
  Serious: Yes (Other)
  Sender: FDA-Public Use
  Company Number: TR-NOVITIUMPHARMA-2023TRNVP01823

PATIENT
  Age: 15 Year
  Sex: Female

DRUGS (2)
  1. OXYBUTYNIN CHLORIDE [Suspect]
     Active Substance: OXYBUTYNIN CHLORIDE
     Indication: Product used for unknown indication
     Dosage: 25-30MG DAILY
  2. OXYBUTYNIN CHLORIDE [Suspect]
     Active Substance: OXYBUTYNIN CHLORIDE
     Dosage: 50-60MG DAILY

REACTIONS (4)
  - Drug dependence [Unknown]
  - Drug abuse [Unknown]
  - Hallucination, visual [Unknown]
  - Hallucination [Unknown]
